FAERS Safety Report 8347107-4 (Version None)
Quarter: 2012Q2

REPORT INFORMATION
  Report Type: 
  Country: None (occurrence: None)
  Receive Date: 20120509
  Receipt Date: 20120427
  Transmission Date: 20120825
  Serious: Yes (Hospitalization)
  Sender: FDA-Public Use
  Company Number: AT-JNJFOC-20120413043

PATIENT
  Sex: Female

DRUGS (1)
  1. RISPERDAL [Suspect]
     Indication: PRODUCT USED FOR UNKNOWN INDICATION
     Route: 048

REACTIONS (7)
  - ELECTROCARDIOGRAM QT PROLONGED [None]
  - SOMNOLENCE [None]
  - DIZZINESS [None]
  - MUSCLE CONTRACTIONS INVOLUNTARY [None]
  - HYPOKALAEMIA [None]
  - OVERDOSE [None]
  - CONFUSIONAL STATE [None]
